FAERS Safety Report 8268921-X (Version None)
Quarter: 2012Q2

REPORT INFORMATION
  Report Type: 
  Country: None (occurrence: None)
  Receive Date: 20120409
  Receipt Date: 20120329
  Transmission Date: 20120825
  Serious: Yes (Hospitalization)
  Sender: FDA-Public Use
  Company Number: US-JNJFOC-20110908700

PATIENT
  Sex: Male
  Weight: 65.7 kg

DRUGS (2)
  1. REMICADE [Suspect]
     Indication: COLITIS ULCERATIVE
     Route: 042
     Dates: start: 20110309, end: 20110706
  2. MESALAMINE [Concomitant]
     Route: 048

REACTIONS (1)
  - COLITIS ULCERATIVE [None]
